FAERS Safety Report 6584777-5 (Version None)
Quarter: 2010Q1

REPORT INFORMATION
  Report Type: 
  Country: None (occurrence: None)
  Receive Date: 20100204
  Receipt Date: 20100120
  Transmission Date: 20100710
  Serious: Yes (Hospitalization, Other)
  Sender: FDA-Public Use
  Company Number: AUR-APL-2010-00193

PATIENT
  Age: 76 Year
  Sex: Female

DRUGS (7)
  1. ALENDRONIC ACID [Suspect]
     Indication: BONE DENSITY DECREASED
     Dosage: 70MG - WEEKLY
  2. ALENDRONIC ACID [Suspect]
     Indication: PROPHYLAXIS
     Dosage: 70MG - WEEKLY
  3. PREDNISONE [Suspect]
     Indication: RHEUMATOID ARTHRITIS
     Dosage: 5MG - DAILY
     Dates: start: 19990101
  4. METHOTREXATE [Suspect]
     Indication: RHEUMATOID ARTHRITIS
     Dosage: 15 MG - ONCE WEEKLY
     Dates: start: 19990101
  5. OMEPRAZOLE [Suspect]
     Dates: start: 19850101
  6. DICLOFENAC [Concomitant]
  7. INFLIXIMAB [Concomitant]

REACTIONS (3)
  - BONE FORMATION DECREASED [None]
  - FEMUR FRACTURE [None]
  - FRACTURE DELAYED UNION [None]
